FAERS Safety Report 4286506-7 (Version None)
Quarter: 2004Q1

REPORT INFORMATION
  Report Type: 
  Country: None (occurrence: None)
  Receive Date: 20040206
  Receipt Date: 20040127
  Transmission Date: 20041129
  Serious: Yes (Hospitalization)
  Sender: FDA-Public Use
  Company Number: FR-BRISTOL-MYERS SQUIBB COMPANY-12496535

PATIENT
  Age: 60 Year
  Sex: Male

DRUGS (2)
  1. ENDOXAN [Suspect]
     Indication: GOODPASTURE'S SYNDROME
     Dates: end: 20031223
  2. PREVISCAN [Concomitant]
     Route: 048
     Dates: start: 20031130

REACTIONS (3)
  - AGRANULOCYTOSIS [None]
  - ARTERIOVENOUS FISTULA, ACQUIRED [None]
  - INFECTION [None]
